FAERS Safety Report 14707886 (Version 2)
Quarter: 2018Q2

REPORT INFORMATION
  Report Type: Spontaneous
  Country: US (occurrence: US)
  Receive Date: 20180403
  Receipt Date: 20180503
  Transmission Date: 20180711
  Serious: No
  Sender: FDA-Public Use
  Company Number: US-PFIZER INC-2018130569

PATIENT
  Age: 57 Year
  Sex: Male
  Weight: 81.65 kg

DRUGS (2)
  1. TAGAMET [Concomitant]
     Active Substance: CIMETIDINE
     Indication: GASTROOESOPHAGEAL REFLUX DISEASE
     Dosage: UNK
     Dates: start: 201803, end: 201803
  2. SUTENT [Suspect]
     Active Substance: SUNITINIB MALATE
     Indication: RENAL CANCER
     Dosage: 50 MG, CYCLIC (50MG CAPSULES, ONCE BY MOUTH BEFORE BED, HE WAS ON IT FOR 4 WEEKS, AND 2 WEEKS OFF)
     Route: 048

REACTIONS (5)
  - Gastrooesophageal reflux disease [Unknown]
  - Fatigue [Unknown]
  - Dysgeusia [Unknown]
  - Oesophagitis [Recovered/Resolved]
  - Condition aggravated [Unknown]

NARRATIVE: CASE EVENT DATE: 20180227
